FAERS Safety Report 6088079-5 (Version None)
Quarter: 2009Q1

REPORT INFORMATION
  Report Type: 
  Country: None (occurrence: None)
  Receive Date: 20090218
  Receipt Date: 20081223
  Transmission Date: 20090719
  Serious: Yes (Life-Threatening, Hospitalization)
  Sender: FDA-Public Use
  Company Number: 20085302

PATIENT
  Sex: Male

DRUGS (1)
  1. LIORESAL [Suspect]
     Indication: MUSCLE SPASTICITY
     Dosage: DAILY, INTRATHECAL
     Route: 037

REACTIONS (9)
  - HYPERSOMNIA [None]
  - LETHARGY [None]
  - MUSCLE RIGIDITY [None]
  - MUSCLE SPASTICITY [None]
  - NERVOUS SYSTEM DISORDER [None]
  - OVERDOSE [None]
  - RESPIRATORY DEPRESSION [None]
  - UNDERDOSE [None]
  - WITHDRAWAL SYNDROME [None]
